FAERS Safety Report 5002058-8 (Version None)
Quarter: 2006Q2

REPORT INFORMATION
  Report Type: 
  Country: None (occurrence: None)
  Receive Date: 20060515
  Receipt Date: 20060117
  Transmission Date: 20061013
  Serious: Yes (Other)
  Sender: FDA-Public Use
  Company Number: US-MERCK-0601USA02192

PATIENT
  Age: 73 Year
  Sex: Male
  Weight: 75 kg

DRUGS (8)
  1. VIOXX [Suspect]
     Indication: ARTHRITIS
     Route: 048
     Dates: start: 20000314, end: 20040930
  2. VIOXX [Suspect]
     Indication: PAIN
     Route: 048
     Dates: start: 20000314, end: 20040930
  3. ATENOLOL [Concomitant]
     Indication: HYPERTENSION
     Route: 065
  4. PROTONIX [Concomitant]
     Indication: STOMACH DISCOMFORT
     Route: 065
  5. BECONASE [Concomitant]
     Indication: HYPERSENSITIVITY
     Route: 055
  6. CATAPRES [Concomitant]
     Indication: HYPERTENSION
     Route: 065
  7. LEVOXYL [Concomitant]
     Indication: HYPOTHYROIDISM
     Route: 065
  8. CLONIDINE HYDROCHLORIDE [Concomitant]
     Route: 065

REACTIONS (3)
  - CEREBROVASCULAR ACCIDENT [None]
  - HEART RATE IRREGULAR [None]
  - SKIN CANCER [None]
